FAERS Safety Report 6889680-9 (Version None)
Quarter: 2010Q3

REPORT INFORMATION
  Report Type: 
  Country: None (occurrence: None)
  Receive Date: 20100730
  Receipt Date: 20080409
  Transmission Date: 20110219
  Serious: No
  Sender: FDA-Public Use
  Company Number: US-PFIZER INC-2008014915

PATIENT
  Sex: Male
  Weight: 90 kg

DRUGS (9)
  1. LIPITOR [Suspect]
     Indication: BLOOD CHOLESTEROL INCREASED
     Route: 048
     Dates: start: 20060719, end: 20080214
  2. CARVEDILOL [Concomitant]
     Dosage: 25MG 1/2 TABLET
  3. ACETYLSALICYLIC ACID SRT [Concomitant]
  4. FOSAMAX PLUS D [Concomitant]
  5. CITRACAL [Concomitant]
  6. NITROSTAT [Concomitant]
  7. FISH OIL [Concomitant]
  8. CENTRUM SILVER [Concomitant]
  9. CORGARD [Concomitant]

REACTIONS (2)
  - FEELING ABNORMAL [None]
  - MYALGIA [None]
